FAERS Safety Report 21632885 (Version 1)
Quarter: 2022Q4

REPORT INFORMATION
  Report Type: Spontaneous
  Country: CA (occurrence: CA)
  Receive Date: 20221123
  Receipt Date: 20221123
  Transmission Date: 20230113
  Serious: Yes (Death, Other)
  Sender: FDA-Public Use
  Company Number: CA-PFIZER INC-PV202200108744

PATIENT
  Age: 61 Year
  Sex: Female

DRUGS (1)
  1. EPIRUBICIN HYDROCHLORIDE [Suspect]
     Active Substance: EPIRUBICIN HYDROCHLORIDE
     Indication: Small cell carcinoma
     Dosage: 3 CYCLES

REACTIONS (3)
  - Pneumonia [Fatal]
  - Anaemia [Fatal]
  - Off label use [Unknown]
